FAERS Safety Report 5334162-9 (Version None)
Quarter: 2007Q2

REPORT INFORMATION
  Report Type: 
  Country: None (occurrence: None)
  Receive Date: 20070523
  Receipt Date: 20070523
  Transmission Date: 20071010
  Serious: No
  Sender: FDA-Public Use
  Company Number: None

PATIENT
  Age: 59 Year
  Sex: Male
  Weight: 107.5025 kg

DRUGS (2)
  1. FENOFIBRATE [Suspect]
     Indication: LIPIDS DECREASED
     Dosage: 2 CAPS PO QD
     Route: 048
     Dates: start: 20061128, end: 20070425
  2. SIMVASTATIN [Concomitant]

REACTIONS (1)
  - RENAL FAILURE [None]
